FAERS Safety Report 11635697 (Version 2)
Quarter: 2015Q4

REPORT INFORMATION
  Report Type: Spontaneous
  Country: US (occurrence: US)
  Receive Date: 20151016
  Receipt Date: 20151105
  Transmission Date: 20160304
  Serious: No
  Sender: FDA-Public Use
  Company Number: US-PFIZER INC-2015343297

PATIENT
  Age: 62 Year
  Sex: Female
  Weight: 58.96 kg

DRUGS (6)
  1. CHANTIX [Suspect]
     Active Substance: VARENICLINE TARTRATE
     Indication: SMOKING CESSATION THERAPY
     Dosage: 1 MG, 2X/DAY
     Dates: start: 201508, end: 201510
  2. PRAVASTATIN [Concomitant]
     Active Substance: PRAVASTATIN\PRAVASTATIN SODIUM
     Dosage: 40 MG, 1X/DAY
     Route: 048
  3. CELEXA [Concomitant]
     Active Substance: CITALOPRAM HYDROBROMIDE
     Dosage: 40 MG, 1X/DAY
     Route: 048
  4. MELATONIN [Concomitant]
     Active Substance: MELATONIN
     Dosage: 10 MG, 1X/DAY
     Route: 048
  5. CHANTIX [Suspect]
     Active Substance: VARENICLINE TARTRATE
     Dosage: 0.5 MG, 2X/DAY
     Dates: start: 201510
  6. SEROQUEL [Concomitant]
     Active Substance: QUETIAPINE FUMARATE
     Indication: INSOMNIA
     Dosage: 300 MG, 0.5 TABLET, AT NIGHT
     Route: 048

REACTIONS (12)
  - Drug withdrawal syndrome [Not Recovered/Not Resolved]
  - Nicotine dependence [Not Recovered/Not Resolved]
  - Depression [Not Recovered/Not Resolved]
  - Disorientation [Recovered/Resolved]
  - Dizziness [Recovering/Resolving]
  - Abnormal dreams [Not Recovered/Not Resolved]
  - Activities of daily living impaired [Recovered/Resolved]
  - Feeling abnormal [Recovered/Resolved]
  - Insomnia [Unknown]
  - Gait disturbance [Not Recovered/Not Resolved]
  - Apathy [Not Recovered/Not Resolved]
  - Exercise lack of [Recovered/Resolved]

NARRATIVE: CASE EVENT DATE: 2015
